FAERS Safety Report 18910957 (Version 2)
Quarter: 2021Q4

REPORT INFORMATION
  Report Type: Report from Study
  Country: CA (occurrence: CA)
  Receive Date: 20210218
  Receipt Date: 20211105
  Transmission Date: 20220303
  Serious: No
  Sender: FDA-Public Use
  Company Number: CA-BAYER-2019-148953

PATIENT
  Age: 74 Year
  Sex: Male

DRUGS (6)
  1. NEXAVAR [Suspect]
     Active Substance: SORAFENIB
     Dosage: 200 MG, BID
     Route: 048
     Dates: start: 20190809, end: 2019
  2. NEXAVAR [Suspect]
     Active Substance: SORAFENIB
     Dosage: 200MG PER DAY
     Route: 048
     Dates: start: 2019, end: 2019
  3. NEXAVAR [Suspect]
     Active Substance: SORAFENIB
     Dosage: 200 MG, BID
     Dates: start: 20190916, end: 2019
  4. NEXAVAR [Suspect]
     Active Substance: SORAFENIB
     Dosage: 600 MG, QD
     Dates: start: 2019, end: 2019
  5. NEXAVAR [Suspect]
     Active Substance: SORAFENIB
     Dosage: 200 MG, BID
     Route: 048
     Dates: start: 2019
  6. NEXAVAR [Suspect]
     Active Substance: SORAFENIB
     Dosage: UNK

REACTIONS (2)
  - Catheter site vesicles [None]
  - Off label use [None]

NARRATIVE: CASE EVENT DATE: 20190809
